FAERS Safety Report 13573722 (Version 2)
Quarter: 2017Q4

REPORT INFORMATION
  Report Type: Spontaneous
  Country: US (occurrence: US)
  Receive Date: 20170523
  Receipt Date: 20171012
  Transmission Date: 20180320
  Serious: Yes (Hospitalization, Other)
  Sender: FDA-Public Use
  Company Number: US-BAYER-2017-092462

PATIENT
  Age: 77 Year
  Sex: Female

DRUGS (3)
  1. STIVARGA [Suspect]
     Active Substance: REGORAFENIB
     Indication: COLON NEOPLASM
     Dosage: 160 MG, DAILY 3 WEEKS ON AND ONE WEEK OFF
     Dates: start: 201702, end: 2017
  2. STIVARGA [Suspect]
     Active Substance: REGORAFENIB
     Indication: COLON CANCER METASTATIC
     Dosage: 80 MG, DAILY
     Route: 048
     Dates: start: 201703, end: 201705
  3. STIVARGA [Suspect]
     Active Substance: REGORAFENIB
     Indication: COLON NEOPLASM
     Dosage: 80 MG, DAILY
     Route: 048
     Dates: start: 201708

REACTIONS (12)
  - Hypertension [None]
  - Feeling abnormal [None]
  - Hypophagia [None]
  - Blood pressure increased [Recovered/Resolved]
  - Carcinoembryonic antigen increased [Not Recovered/Not Resolved]
  - Colon cancer metastatic [None]
  - Fatigue [None]
  - Fall [Recovering/Resolving]
  - Hip fracture [Recovering/Resolving]
  - Oral pain [None]
  - Loss of consciousness [Not Recovered/Not Resolved]
  - Blood pressure fluctuation [Not Recovered/Not Resolved]

NARRATIVE: CASE EVENT DATE: 20170301
